FAERS Safety Report 13490951 (Version 1)
Quarter: 2017Q2

REPORT INFORMATION
  Report Type: Spontaneous
  Country: SK (occurrence: SK)
  Receive Date: 20170427
  Receipt Date: 20170427
  Transmission Date: 20170830
  Serious: Yes (Other)
  Sender: FDA-Public Use
  Company Number: SK-009507513-1703SVK005024

PATIENT
  Sex: Male

DRUGS (1)
  1. ATOZET [Suspect]
     Active Substance: ATORVASTATIN CALCIUM\EZETIMIBE
     Dosage: UNK
     Route: 048

REACTIONS (1)
  - Hepatic neoplasm [Unknown]
